FAERS Safety Report 5619945-X (Version None)
Quarter: 2008Q1

REPORT INFORMATION
  Report Type: 
  Country: None (occurrence: None)
  Receive Date: 20080208
  Receipt Date: 20080206
  Transmission Date: 20080703
  Serious: Yes (Other)
  Sender: FDA-Public Use
  Company Number: GB-BRISTOL-MYERS SQUIBB COMPANY-14067466

PATIENT
  Sex: Male

DRUGS (1)
  1. MOLIPAXIN TABS [Suspect]
     Indication: DEPRESSION
     Route: 048

REACTIONS (1)
  - PEYRONIE'S DISEASE [None]
